FAERS Safety Report 14892807 (Version 2)
Quarter: 2018Q2

REPORT INFORMATION
  Report Type: Report from Study
  Country: MX (occurrence: MX)
  Receive Date: 20180514
  Receipt Date: 20180523
  Transmission Date: 20180711
  Serious: Yes (Other)
  Sender: FDA-Public Use
  Company Number: PHHY2018MX003482

PATIENT
  Sex: Female
  Weight: 76 kg

DRUGS (14)
  1. METROTEX [Concomitant]
     Indication: PRODUCT USED FOR UNKNOWN INDICATION
     Route: 065
  2. LASILACTON [Concomitant]
     Active Substance: FUROSEMIDE\SPIRONOLACTONE
     Indication: URINARY RETENTION
     Dosage: 1 DF, QD
     Route: 048
  3. COZAAR [Concomitant]
     Active Substance: LOSARTAN POTASSIUM
     Indication: HEART RATE INCREASED
  4. TRAVATAN [Suspect]
     Active Substance: TRAVOPROST
     Indication: INTRAOCULAR PRESSURE TEST ABNORMAL
     Dosage: 1 GTT, QD (EACH EYE)
     Route: 047
  5. PANTOPRAZOLE [Concomitant]
     Active Substance: PANTOPRAZOLE
     Indication: PROPHYLAXIS
     Dosage: 2 DF, QD (1 TABLET IN THE MORNING AND 1 AT NIGHT)
     Route: 048
  6. BENTYL [Concomitant]
     Active Substance: DICYCLOMINE HYDROCHLORIDE
     Indication: GASTRIC DISORDER
     Dosage: 3 DF, QD
     Route: 048
  7. DORIXINA [Concomitant]
     Indication: ANALGESIC THERAPY
     Dosage: 2 DF, QD
     Route: 048
  8. COZAAR [Concomitant]
     Active Substance: LOSARTAN POTASSIUM
     Indication: BLOOD PRESSURE ABNORMAL
     Dosage: 1 DF, QD
     Route: 048
  9. PROPANOLOL [Concomitant]
     Active Substance: PROPRANOLOL HYDROCHLORIDE
     Indication: VARICES OESOPHAGEAL
     Dosage: 2 DF, Q8H
     Route: 048
  10. PROPANOLOL [Concomitant]
     Active Substance: PROPRANOLOL HYDROCHLORIDE
     Indication: HEART RATE INCREASED
  11. NEUROTIN [Concomitant]
     Active Substance: GABAPENTIN
     Indication: NEUROPATHY PERIPHERAL
     Dosage: 2 DF, QD
     Route: 048
  12. ESPAVEN [Concomitant]
     Indication: GASTRIC DISORDER
     Dosage: 1 DF, QD (AFTER EACH FOOD)
     Route: 048
  13. LACTULAX [Concomitant]
     Indication: CONSTIPATION
     Dosage: UNK
     Route: 048
  14. LIPITOR [Concomitant]
     Active Substance: ATORVASTATIN CALCIUM
     Indication: BLOOD TRIGLYCERIDES ABNORMAL
     Dosage: 1 DF, QD
     Route: 048

REACTIONS (3)
  - Spinal deformity [Unknown]
  - Spinal deformity [Recovered/Resolved with Sequelae]
  - Hepatic cirrhosis [Not Recovered/Not Resolved]
